FAERS Safety Report 16913419 (Version 1)
Quarter: 2019Q4

REPORT INFORMATION
  Report Type: Spontaneous
  Country: ES (occurrence: ES)
  Receive Date: 20191014
  Receipt Date: 20191014
  Transmission Date: 20200122
  Serious: Yes (Hospitalization)
  Sender: FDA-Public Use
  Company Number: ES-ACCORD-157727

PATIENT
  Age: 39 Year
  Sex: Male

DRUGS (1)
  1. CISPLATIN. [Suspect]
     Active Substance: CISPLATIN
     Indication: TESTICULAR GERM CELL TUMOUR MIXED
     Route: 042
     Dates: start: 20190514, end: 20190608

REACTIONS (1)
  - Arterial thrombosis [Recovered/Resolved]

NARRATIVE: CASE EVENT DATE: 20190615
